FAERS Safety Report 8922237 (Version 1)
Quarter: 2012Q4

REPORT INFORMATION
  Report Type: 
  Country: US (occurrence: US)
  Receive Date: 20121123
  Receipt Date: 20121123
  Transmission Date: 20130627
  Serious: Yes (Other)
  Sender: FDA-Public Use
  Company Number: US-PFIZER INC-2012293743

PATIENT
  Age: 90 Year
  Sex: Female
  Weight: 48.53 kg

DRUGS (2)
  1. ZOLOFT [Suspect]
     Indication: ANXIETY
     Dosage: 50 mg, daily
     Dates: start: 2008
  2. ACTENOL [Concomitant]
     Indication: OSTEOPOROSIS
     Dosage: 150 mg, monthly

REACTIONS (1)
  - Fracture [Recovering/Resolving]
